FAERS Safety Report 9050908 (Version 2)
Quarter: 2013Q3

REPORT INFORMATION
  Report Type: Spontaneous
  Country: GB (occurrence: GB)
  Receive Date: 20130205
  Receipt Date: 20130930
  Transmission Date: 20140515
  Serious: Yes (Disabling)
  Sender: FDA-Public Use
  Company Number: GB-PFIZER INC-2013027644

PATIENT
  Age: 42 Year
  Sex: Male

DRUGS (9)
  1. CIPROFLOXACIN [Suspect]
     Indication: PILONIDAL CYST
     Dosage: 500 MG, SINGLE DOSE BEGINING AT 19:30
     Route: 048
     Dates: start: 20130108, end: 20130108
  2. METRONIDAZOLE [Suspect]
     Indication: PILONIDAL CYST
     Dosage: 400 MG, 3X/DAY
     Route: 048
     Dates: start: 20130108, end: 20130109
  3. CO-CODAMOL [Concomitant]
     Indication: PAIN
     Dosage: 30MG/500MG TABLETS
     Route: 048
     Dates: start: 20130108
  4. ERYTHROMYCIN [Concomitant]
     Indication: PILONIDAL CYST
     Dosage: 500 MG, 4X/DAY
     Route: 048
     Dates: start: 20121220, end: 20121227
  5. IBUPROFEN [Concomitant]
     Indication: PAIN
     Dosage: 400MG STAT AT 10:30AM
     Route: 048
     Dates: start: 20130109, end: 201301
  6. MORPHINE SULFATE [Concomitant]
     Indication: PAIN
     Dosage: 10MG/1ML SOLUTION
     Route: 040
     Dates: start: 20130109, end: 20130109
  7. MORPHINE SULFATE [Concomitant]
     Dosage: 10MG/5ML ORAL SOLUTION. 20MG STAT AT 10:20AM
     Route: 048
     Dates: start: 20130109, end: 20130109
  8. PARACETAMOL [Concomitant]
     Indication: PRODUCT USED FOR UNKNOWN INDICATION
     Dosage: 1G STAT AT 11AM
     Route: 048
     Dates: start: 20130109, end: 20130109
  9. TRAMADOL [Concomitant]
     Indication: PAIN
     Dosage: 100 MG, UNK
     Route: 048
     Dates: start: 20130109, end: 20130109

REACTIONS (2)
  - Deafness bilateral [Recovered/Resolved]
  - Vertigo [Not Recovered/Not Resolved]
